FAERS Safety Report 7118237-X (Version None)
Quarter: 2010Q4

REPORT INFORMATION
  Report Type: 
  Country: None (occurrence: None)
  Receive Date: 20101118
  Receipt Date: 20101118
  Transmission Date: 20110411
  Serious: Yes (Death)
  Sender: FDA-Public Use
  Company Number: None

PATIENT
  Age: 76 Year
  Sex: Male
  Weight: 90.7194 kg

DRUGS (3)
  1. AMIODARONE HCL [Suspect]
     Indication: ATRIAL FIBRILLATION
     Dosage: 200 MG DAILY PO
     Route: 048
     Dates: start: 20090301, end: 20100420
  2. TOPROL-XL [Concomitant]
  3. COUMADIN [Concomitant]

REACTIONS (3)
  - DRUG TOXICITY [None]
  - LUNG DISORDER [None]
  - PULMONARY FIBROSIS [None]
